FAERS Safety Report 8246730-5 (Version None)
Quarter: 2012Q1

REPORT INFORMATION
  Report Type: 
  Country: None (occurrence: None)
  Receive Date: 20120330
  Receipt Date: 20120320
  Transmission Date: 20120608
  Serious: Yes (Other)
  Sender: FDA-Public Use
  Company Number: JP-VALEANT-2012VX001360

PATIENT

DRUGS (7)
  1. PACLITAXEL [Suspect]
     Indication: GASTRIC CANCER STAGE IV
     Route: 042
  2. CHLORPHENIRAMINE MALEATE [Concomitant]
     Indication: HYPERSENSITIVITY
     Route: 065
  3. FLUOROURACIL [Suspect]
     Route: 040
  4. DEXAMETHASONE [Concomitant]
     Indication: HYPERSENSITIVITY
     Route: 065
  5. RANITIDINE [Concomitant]
     Indication: HYPERSENSITIVITY
     Route: 065
  6. FLUOROURACIL [Suspect]
     Indication: GASTRIC CANCER STAGE IV
     Route: 040
  7. LEUCOVORIN CALCIUM [Suspect]
     Indication: GASTRIC CANCER STAGE IV
     Route: 040

REACTIONS (1)
  - FEBRILE NEUTROPENIA [None]
